FAERS Safety Report 4641163-2 (Version None)
Quarter: 2005Q1

REPORT INFORMATION
  Report Type: 
  Country: None (occurrence: None)
  Receive Date: 20050322
  Receipt Date: 20040401
  Transmission Date: 20050727
  Serious: Yes (Hospitalization)
  Sender: FDA-Public Use
  Company Number: HQWYE342302APR04

PATIENT
  Sex: Male

DRUGS (10)
  1. PROTONIX [Suspect]
     Indication: GASTROOESOPHAGEAL REFLUX DISEASE
     Dosage: 40 MG 1X PER 1 DAY, ORAL
     Route: 048
     Dates: start: 20040101, end: 20040301
  2. PROTONIX [Suspect]
     Indication: GASTROOESOPHAGEAL REFLUX DISEASE
     Dosage: INTRAVENOUS
     Route: 042
     Dates: start: 20040301
  3. HYDRALAZINE HCL [Concomitant]
  4. DIGOXIN [Concomitant]
  5. COLACE (DOCUSATE SODIUM) [Concomitant]
  6. ALLOPURINOL [Concomitant]
  7. TOPROL-XL [Concomitant]
  8. LASIX [Concomitant]
  9. COZAAR [Concomitant]
  10. ISORDIL [Concomitant]

REACTIONS (2)
  - CARDIAC DISORDER [None]
  - EOSINOPHILIA [None]
